FAERS Safety Report 20042989 (Version 1)
Quarter: 2021Q4

REPORT INFORMATION
  Report Type: Spontaneous
  Country: ES (occurrence: ES)
  Receive Date: 20211108
  Receipt Date: 20211108
  Transmission Date: 20220303
  Serious: Yes (Hospitalization)
  Sender: FDA-Public Use
  Company Number: None

PATIENT
  Age: 81 Year
  Sex: Female

DRUGS (5)
  1. IPILIMUMAB [Suspect]
     Active Substance: IPILIMUMAB
     Indication: Metastatic malignant melanoma
     Dosage: 160 MILLIGRAM (C/21 DIAS)
     Route: 042
     Dates: start: 20200625, end: 20200715
  2. SIMVASTATINA CINFA [Concomitant]
     Indication: Hypercholesterolaemia
     Dosage: 20 MILLIGRAM CE
     Route: 048
     Dates: start: 20111214
  3. PARACETAMOL KERN PHARMA [Concomitant]
     Indication: Osteoarthritis
     Dosage: 1.0 G A-DECE
     Route: 048
     Dates: start: 20120703
  4. CALCIUM CARBONATE\CHOLECALCIFEROL [Concomitant]
     Active Substance: CALCIUM CARBONATE\CHOLECALCIFEROL
     Indication: Bone disorder
     Dosage: 1.0 COMP C/24 H
     Route: 048
     Dates: start: 20181211
  5. HYDROCHLOROTHIAZIDE\LISINOPRIL [Concomitant]
     Active Substance: HYDROCHLOROTHIAZIDE\LISINOPRIL
     Indication: Hypertension
     Dosage: 20 MILLIGRAM, DE
     Route: 048
     Dates: start: 20111125

REACTIONS (4)
  - Diarrhoea [Recovered/Resolved]
  - Vomiting [Recovered/Resolved]
  - Asthenia [Recovered/Resolved]
  - Gastroenteritis [Recovered/Resolved]

NARRATIVE: CASE EVENT DATE: 20200722
